FAERS Safety Report 5177549-X (Version None)
Quarter: 2006Q4

REPORT INFORMATION
  Report Type: 
  Country: None (occurrence: None)
  Receive Date: 20061218
  Receipt Date: 20060817
  Transmission Date: 20070319
  Serious: Yes (Hospitalization, Other)
  Sender: FDA-Public Use
  Company Number: US-BOEHRINGER INGELHEIM PHARMACEUTICALS, INC.-2006-BP-09632BP

PATIENT
  Sex: Male

DRUGS (3)
  1. FLOMAX [Suspect]
     Indication: BENIGN PROSTATIC HYPERPLASIA
     Route: 048
     Dates: start: 19990101
  2. FLOMAX [Suspect]
     Indication: PROSTATE EXAMINATION ABNORMAL
  3. COMBIVENT [Concomitant]

REACTIONS (3)
  - DRUG EFFECT DECREASED [None]
  - LUNG NEOPLASM MALIGNANT [None]
  - URINARY INCONTINENCE [None]
